FAERS Safety Report 25463619 (Version 2)
Quarter: 2025Q3

REPORT INFORMATION
  Report Type: Spontaneous
  Country: US (occurrence: US)
  Receive Date: 20250620
  Receipt Date: 20250912
  Transmission Date: 20251020
  Serious: Yes (Other)
  Sender: REGENERON
  Company Number: US-REGENERON PHARMACEUTICALS, INC.-2025-082868

PATIENT
  Sex: Male

DRUGS (2)
  1. EYLEA HD [Suspect]
     Active Substance: AFLIBERCEPT
     Indication: Product used for unknown indication
  2. EYLEA HD [Suspect]
     Active Substance: AFLIBERCEPT
     Dates: start: 20241021, end: 20241021

REACTIONS (1)
  - Non-infectious endophthalmitis [Unknown]

NARRATIVE: CASE EVENT DATE: 20241025
